FAERS Safety Report 4724300-0 (Version None)
Quarter: 2005Q3

REPORT INFORMATION
  Report Type: 
  Country: None (occurrence: None)
  Receive Date: 20050721
  Receipt Date: 20050721
  Transmission Date: 20060218
  Serious: Yes (Other)
  Sender: FDA-Public Use
  Company Number: None

PATIENT
  Age: 50 Year
  Sex: Female
  Weight: 86.1834 kg

DRUGS (2)
  1. LEVAQUIN [Suspect]
     Indication: EAR INFECTION
     Dosage: 1  TABLET   ORAL
     Route: 048
     Dates: start: 20050619, end: 20050628
  2. LEVAQUIN [Suspect]
     Indication: SINUSITIS
     Dosage: 1  TABLET   ORAL
     Route: 048
     Dates: start: 20050619, end: 20050628

REACTIONS (3)
  - MYALGIA [None]
  - PAIN IN EXTREMITY [None]
  - PARAESTHESIA [None]
